FAERS Safety Report 6713469-4 (Version None)
Quarter: 2010Q2

REPORT INFORMATION
  Report Type: 
  Country: None (occurrence: None)
  Receive Date: 20100503
  Receipt Date: 20100421
  Transmission Date: 20101027
  Serious: Yes (Hospitalization)
  Sender: FDA-Public Use
  Company Number: 1000013466

PATIENT
  Age: 85 Year
  Sex: Female

DRUGS (7)
  1. MEMANTINE [Suspect]
     Indication: DEMENTIA ALZHEIMER'S TYPE
     Dosage: 20 MG (10 MG, 2 IN 1 D), ORAL
     Route: 048
     Dates: start: 20100126, end: 20100407
  2. ATENOLOL [Concomitant]
  3. PRAVASTATIN [Concomitant]
  4. ASPEGIC 1000 [Concomitant]
  5. LEVOTHYROX [Concomitant]
  6. SPIRONOLACTONE/ALTIZIDE [Concomitant]
  7. ARICEPT [Concomitant]

REACTIONS (15)
  - ABNORMAL BEHAVIOUR [None]
  - APATHY [None]
  - BRADYCARDIA [None]
  - CONFUSIONAL STATE [None]
  - DEHYDRATION [None]
  - FAECALOMA [None]
  - HAEMATOCRIT INCREASED [None]
  - HYPERGLYCAEMIA [None]
  - HYPERNATRAEMIA [None]
  - HYPOALBUMINAEMIA [None]
  - HYPOPHAGIA [None]
  - PROTEUS INFECTION [None]
  - RENAL FAILURE [None]
  - SOMNOLENCE [None]
  - URINARY TRACT INFECTION ENTEROCOCCAL [None]
